FAERS Safety Report 6310224-4 (Version None)
Quarter: 2009Q4

REPORT INFORMATION
  Report Type: 
  Country: None (occurrence: None)
  Receive Date: 20090811
  Receipt Date: 20090728
  Transmission Date: 20100525
  Serious: Yes (Hospitalization, Other)
  Sender: FDA-Public Use
  Company Number: KV200801587

PATIENT
  Age: 46 Year
  Sex: Female

DRUGS (7)
  1. MORPHINE SULFATE [Suspect]
     Indication: PAIN MANAGEMENT
     Dosage: 60 MG, QID, ORAL
     Route: 048
     Dates: start: 20071101, end: 20080403
  2. LEVOTHYROXINE SODIUM [Concomitant]
  3. FLUOXETINE [Concomitant]
  4. LISINOPRIL [Concomitant]
  5. OMEPRAZOLE [Concomitant]
  6. LIDODERM [Concomitant]
  7. FENTANYL-100 [Concomitant]

REACTIONS (12)
  - BLOOD PRESSURE ABNORMAL [None]
  - BLOOD PRESSURE FLUCTUATION [None]
  - CARDIAC DISORDER [None]
  - DEPENDENCE [None]
  - DRUG TOXICITY [None]
  - HEPATOCELLULAR INJURY [None]
  - LOSS OF CONSCIOUSNESS [None]
  - MUSCULAR WEAKNESS [None]
  - NARCOTIC INTOXICATION [None]
  - ORGAN FAILURE [None]
  - OVERDOSE [None]
  - PRODUCT QUALITY ISSUE [None]
